FAERS Safety Report 8889294 (Version 1)
Quarter: 2012Q4

REPORT INFORMATION
  Report Type: 
  Country: US (occurrence: US)
  Receive Date: 20121106
  Receipt Date: 20121106
  Transmission Date: 20130627
  Serious: Yes (Other)
  Sender: FDA-Public Use
  Company Number: US-PFIZER INC-2012270994

PATIENT
  Age: 73 Year
  Sex: Female
  Weight: 54.42 kg

DRUGS (2)
  1. LYRICA [Suspect]
     Indication: NERVE INJURY
     Dosage: 75 mg, 1x/day
     Route: 048
  2. PREMARIN [Suspect]
     Dosage: UNK

REACTIONS (3)
  - Lung infection [Unknown]
  - Bronchiectasis [Unknown]
  - Malaise [Unknown]
